FAERS Safety Report 8281672 (Version 8)
Quarter: 2013Q2

REPORT INFORMATION
  Report Type: Spontaneous
  Country: US (occurrence: US)
  Receive Date: 20111209
  Receipt Date: 20130513
  Transmission Date: 20140414
  Serious: Yes (Hospitalization, Congenital Anomaly, Other)
  Sender: FDA-Public Use
  Company Number: US-JNJFOC-20111203494

PATIENT
  Sex: Male

DRUGS (12)
  1. TOPAMAX [Suspect]
     Indication: FOETAL EXPOSURE DURING PREGNANCY
     Route: 064
     Dates: start: 20060803, end: 20061006
  2. PROZAC [Suspect]
     Indication: FOETAL EXPOSURE DURING PREGNANCY
     Route: 064
  3. ZOLOFT [Suspect]
     Indication: FOETAL EXPOSURE DURING PREGNANCY
     Route: 064
  4. JANUVIA [Suspect]
     Indication: FOETAL EXPOSURE DURING PREGNANCY
     Route: 064
  5. METFORMIN [Suspect]
     Indication: FOETAL EXPOSURE DURING PREGNANCY
     Route: 064
  6. LANTUS [Suspect]
     Indication: FOETAL EXPOSURE DURING PREGNANCY
     Route: 064
  7. NOVOLOG [Suspect]
     Indication: FOETAL EXPOSURE DURING PREGNANCY
     Route: 064
  8. SEROQUEL [Suspect]
     Indication: FOETAL EXPOSURE DURING PREGNANCY
     Route: 064
  9. TERBUTALINE [Suspect]
     Indication: FOETAL EXPOSURE DURING PREGNANCY
     Route: 064
  10. ZOSYN [Suspect]
     Indication: FOETAL EXPOSURE DURING PREGNANCY
     Route: 064
  11. DEXAMETHASONE [Suspect]
     Indication: FOETAL EXPOSURE DURING PREGNANCY
     Route: 064
  12. PRENATAL VITAMINS [Concomitant]
     Indication: FOETAL EXPOSURE DURING PREGNANCY
     Route: 064

REACTIONS (18)
  - Meningomyelocele [Unknown]
  - Developmental delay [Unknown]
  - Feeding disorder neonatal [Recovering/Resolving]
  - Spina bifida [Recovering/Resolving]
  - Attention deficit/hyperactivity disorder [Unknown]
  - Ear infection [Unknown]
  - Drug withdrawal syndrome neonatal [Recovering/Resolving]
  - Jaundice [Unknown]
  - Deafness [Recovering/Resolving]
  - Speech disorder [Recovering/Resolving]
  - Type 1 diabetes mellitus [Unknown]
  - Respiratory disorder [Unknown]
  - Weight decreased [Recovering/Resolving]
  - Gastrooesophageal reflux disease [Recovering/Resolving]
  - Failure to thrive [Recovering/Resolving]
  - Tethered cord syndrome [Recovering/Resolving]
  - Anxiety [Unknown]
  - Constipation [Unknown]
